FAERS Safety Report 8593087-6 (Version None)
Quarter: 2012Q3

REPORT INFORMATION
  Report Type: 
  Country: None (occurrence: None)
  Receive Date: 20120814
  Receipt Date: 19931012
  Transmission Date: 20120928
  Serious: Yes (Other)
  Sender: FDA-Public Use
  Company Number: US-ROCHE-1100612

PATIENT
  Age: 47 Year
  Sex: Male

DRUGS (2)
  1. NITROGLYCERIN [Concomitant]
     Dosage: 25 MG IN 200 CC DSW
  2. ACTIVASE [Suspect]
     Indication: CHEST PAIN

REACTIONS (2)
  - CHEST DISCOMFORT [None]
  - BRADYCARDIA [None]
